FAERS Safety Report 6585412-2 (Version None)
Quarter: 2010Q1

REPORT INFORMATION
  Report Type: 
  Country: None (occurrence: None)
  Receive Date: 20100217
  Receipt Date: 20100215
  Transmission Date: 20100710
  Serious: Yes (Other)
  Sender: FDA-Public Use
  Company Number: A0844504A

PATIENT
  Age: 19 Year
  Sex: Female

DRUGS (3)
  1. LAMICTAL [Suspect]
     Route: 048
     Dates: start: 20081001
  2. RELPAX [Concomitant]
  3. SEASONALE [Concomitant]

REACTIONS (2)
  - CONVULSION [None]
  - MIGRAINE [None]
